FAERS Safety Report 6124745-0 (Version None)
Quarter: 2009Q1

REPORT INFORMATION
  Report Type: 
  Country: None (occurrence: None)
  Receive Date: 20090319
  Receipt Date: 20090312
  Transmission Date: 20090719
  Serious: Yes (Disabling, Congenital Anomaly)
  Sender: FDA-Public Use
  Company Number: FR-ABBOTT-09P-056-0562032-00

PATIENT
  Age: 3 Month
  Sex: Male

DRUGS (4)
  1. NORVIR [Suspect]
     Indication: PATERNAL DRUGS AFFECTING FOETUS
  2. STAVUDINE [Suspect]
     Indication: PATERNAL DRUGS AFFECTING FOETUS
  3. CRIXIVAN [Suspect]
     Indication: PATERNAL DRUGS AFFECTING FOETUS
  4. ABACAVIR SULFATE [Suspect]
     Indication: PATERNAL DRUGS AFFECTING FOETUS

REACTIONS (4)
  - DRUG EXPOSURE DURING PREGNANCY [None]
  - EAR MALFORMATION [None]
  - FOETAL GROWTH RETARDATION [None]
  - PREMATURE BABY [None]
